FAERS Safety Report 4895826-4 (Version None)
Quarter: 2006Q1

REPORT INFORMATION
  Report Type: 
  Country: None (occurrence: None)
  Receive Date: 20060125
  Receipt Date: 20060110
  Transmission Date: 20060701
  Serious: Yes (Hospitalization, Other)
  Sender: FDA-Public Use
  Company Number: DE-2005-002764

PATIENT
  Age: 47 Year
  Sex: Female
  Weight: 60 kg

DRUGS (3)
  1. BETASERON [Suspect]
     Indication: MULTIPLE SCLEROSIS
     Dosage: 250 UG, EVERY 2D, SUBCUTANEOUS
     Route: 057
     Dates: start: 20020901, end: 20051206
  2. BISOPROLOL FUMARATE [Concomitant]
  3. PANTOPRAZOLE SODIUM [Concomitant]

REACTIONS (15)
  - BLOOD PH INCREASED [None]
  - CARDIOVASCULAR DISORDER [None]
  - DYSPHAGIA [None]
  - DYSPNOEA [None]
  - HEART RATE INCREASED [None]
  - HYPERTENSION [None]
  - HYPERVENTILATION [None]
  - HYPOPERFUSION [None]
  - MICROANGIOPATHY [None]
  - PAIN IN EXTREMITY [None]
  - PANIC REACTION [None]
  - PARAESTHESIA [None]
  - PYREXIA [None]
  - RESTLESSNESS [None]
  - TETANY [None]
